FAERS Safety Report 17169658 (Version 1)
Quarter: 2019Q4

REPORT INFORMATION
  Report Type: Spontaneous
  Country: US (occurrence: US)
  Receive Date: 20191218
  Receipt Date: 20191218
  Transmission Date: 20200122
  Serious: No
  Sender: FDA-Public Use
  Company Number: US-KYOWAKIRIN-2019BKK019764

PATIENT

DRUGS (1)
  1. CRYSVITA [Suspect]
     Active Substance: BUROSUMAB-TWZA
     Indication: HYPOPHOSPHATAEMIA
     Dosage: 10 MG, EVERY 2 WEEKS
     Route: 058
     Dates: start: 20190815

REACTIONS (1)
  - Hunger [Unknown]

NARRATIVE: CASE EVENT DATE: 20191112
